FAERS Safety Report 15491083 (Version 1)
Quarter: 2018Q4

REPORT INFORMATION
  Report Type: Spontaneous
  Country: US (occurrence: US)
  Receive Date: 20181012
  Receipt Date: 20181012
  Transmission Date: 20190205
  Serious: Yes (Hospitalization, Other)
  Sender: FDA-Public Use
  Company Number: US-AUROBINDO-AUR-APL-2018-048711

PATIENT
  Sex: Male

DRUGS (2)
  1. PREDNISONE. [Suspect]
     Active Substance: PREDNISONE
     Indication: CHRONIC OBSTRUCTIVE PULMONARY DISEASE
     Dosage: 10 MILLIGRAM, DAILY
     Route: 065
  2. PREDNISONE. [Suspect]
     Active Substance: PREDNISONE
     Indication: SILICOSIS

REACTIONS (8)
  - Malaise [Unknown]
  - Confusional state [Unknown]
  - Muscle spasms [Unknown]
  - Muscular weakness [Unknown]
  - Asthenia [Unknown]
  - Nocardiosis [Unknown]
  - Decreased appetite [Unknown]
  - Burkholderia cepacia complex infection [Unknown]
